FAERS Safety Report 13788311 (Version 1)
Quarter: 2017Q3

REPORT INFORMATION
  Report Type: Spontaneous
  Country: US (occurrence: US)
  Receive Date: 20170725
  Receipt Date: 20170725
  Transmission Date: 20171127
  Serious: No
  Sender: FDA-Public Use
  Company Number: US-JNJFOC-20170602266

PATIENT
  Sex: Male

DRUGS (19)
  1. FUROSEMIDE. [Concomitant]
     Active Substance: FUROSEMIDE
  2. TERAZOSIN [Concomitant]
     Active Substance: TERAZOSIN\TERAZOSIN HYDROCHLORIDE
  3. VITAMIN C [Concomitant]
     Active Substance: ASCORBIC ACID
  4. IMBRUVICA [Suspect]
     Active Substance: IBRUTINIB
     Indication: CHRONIC LYMPHOCYTIC LEUKAEMIA
     Route: 048
     Dates: start: 20160517, end: 20170527
  5. COUMADIN [Concomitant]
     Active Substance: WARFARIN SODIUM
  6. OMEPRAZOLE. [Concomitant]
     Active Substance: OMEPRAZOLE
  7. GABAPENTIN. [Concomitant]
     Active Substance: GABAPENTIN
  8. FLAXSEED [Concomitant]
     Active Substance: FLAX SEED
  9. COCONUT OIL [Concomitant]
     Active Substance: COCONUT OIL
  10. IBUPROFEN. [Concomitant]
     Active Substance: IBUPROFEN
  11. MULTIVITAMINS [Concomitant]
     Active Substance: VITAMINS
  12. FISH OIL W/TOCOPHEROL [Concomitant]
  13. CALCIUM CARBONATE. [Concomitant]
     Active Substance: CALCIUM CARBONATE
  14. COENZYME Q10 [Concomitant]
     Active Substance: UBIDECARENONE
  15. VACCINIUM MACROCARPON [Concomitant]
     Active Substance: CRANBERRY
  16. MONASCUS PURPUREUS [Concomitant]
     Active Substance: RED YEAST
  17. VITAMIN D [Concomitant]
     Active Substance: CHOLECALCIFEROL
  18. AMLODIPINE [Concomitant]
     Active Substance: AMLODIPINE BESYLATE
  19. LUTEIN [Concomitant]
     Active Substance: LUTEIN

REACTIONS (1)
  - Drug dose omission [Not Recovered/Not Resolved]
